FAERS Safety Report 12047129 (Version 3)
Quarter: 2016Q1

REPORT INFORMATION
  Report Type: Spontaneous
  Country: US (occurrence: US)
  Receive Date: 20160208
  Receipt Date: 20160329
  Transmission Date: 20160526
  Serious: No
  Sender: FDA-Public Use
  Company Number: US-PFIZER INC-2016071289

PATIENT
  Age: 42 Year
  Sex: Female
  Weight: 69.85 kg

DRUGS (1)
  1. XELJANZ [Suspect]
     Active Substance: TOFACITINIB CITRATE
     Indication: RHEUMATOID ARTHRITIS
     Dosage: 5 MG, 2X/DAY
     Dates: start: 201509

REACTIONS (9)
  - Pain in extremity [Not Recovered/Not Resolved]
  - Memory impairment [Unknown]
  - Muscle spasms [Unknown]
  - Drug effect decreased [Unknown]
  - Balance disorder [Unknown]
  - Fatigue [Unknown]
  - Arthralgia [Not Recovered/Not Resolved]
  - Drug ineffective [Unknown]
  - Weight increased [Unknown]

NARRATIVE: CASE EVENT DATE: 201601
